FAERS Safety Report 24864170 (Version 3)
Quarter: 2025Q1

REPORT INFORMATION
  Report Type: Spontaneous
  Country: FR (occurrence: FR)
  Receive Date: 20250120
  Receipt Date: 20250203
  Transmission Date: 20250409
  Serious: Yes (Death, Hospitalization, Other)
  Sender: SANDOZ
  Company Number: FR-SZ09-PHHY2013FR103422

PATIENT
  Age: 25 Year
  Sex: Female

DRUGS (9)
  1. ROPIVACAINE HYDROCHLORIDE [Suspect]
     Active Substance: ROPIVACAINE HYDROCHLORIDE
     Indication: Analgesic therapy
     Route: 008
  2. ROPIVACAINE HYDROCHLORIDE [Suspect]
     Active Substance: ROPIVACAINE HYDROCHLORIDE
     Indication: Catheter placement
  3. MEROPENEM [Concomitant]
     Active Substance: MEROPENEM
     Indication: Respiratory failure
     Route: 042
  4. MISOPROSTOL [Concomitant]
     Active Substance: MISOPROSTOL
     Indication: Labour induction
     Route: 048
  5. HYDROCORTISONE [Interacting]
     Active Substance: HYDROCORTISONE
     Indication: Product used for unknown indication
     Dosage: 100 MG, QD
     Route: 042
  6. MIFEPRISTONE [Interacting]
     Active Substance: MIFEPRISTONE
     Indication: Abortion induced
     Dosage: 200 MG, QD,(200 MG, ABORTION INDUCED (ABORTION DURATION 1 DAY; SINGLE, INTERVAL DOSAGE INDUCED) 1 DA
     Route: 048
  7. MISOPROSTOL [Interacting]
     Active Substance: MISOPROSTOL
     Indication: Abortion induced
     Dosage: 400 MG, Q3H
     Route: 048
  8. MISOPROSTOL [Interacting]
     Active Substance: MISOPROSTOL
     Dosage: 800 UG, QD, 400 ?G EVERY THREE MEDICAL (TERMINATION OF 1 DAY HOURS)
     Route: 048
  9. PREDNISOLONE [Interacting]
     Active Substance: PREDNISOLONE
     Indication: Respiratory failure
     Dosage: 40 MG, QD
     Route: 048

REACTIONS (14)
  - Respiratory failure [Fatal]
  - Pneumonia [Fatal]
  - Hypoxic-ischaemic encephalopathy [Fatal]
  - Drug interaction [Fatal]
  - Maternal exposure during pregnancy [Fatal]
  - Incorrect dose administered [Fatal]
  - Death [Fatal]
  - Bronchitis [Unknown]
  - Metabolic alkalosis [Unknown]
  - Hypercapnia [Unknown]
  - Increased bronchial secretion [Unknown]
  - Dyspnoea at rest [Unknown]
  - Respiratory rate decreased [Unknown]
  - Chest discomfort [Unknown]
